FAERS Safety Report 8629434 (Version 4)
Quarter: 2014Q1

REPORT INFORMATION
  Report Type: Spontaneous
  Country: US (occurrence: US)
  Receive Date: 20120622
  Receipt Date: 20140128
  Transmission Date: 20141002
  Serious: Yes (Disabling, Other)
  Sender: FDA-Public Use
  Company Number: US-ASTRAZENECA-2012SE35812

PATIENT
  Age: 62 Year
  Sex: Female
  Weight: 77.1 kg

DRUGS (15)
  1. NEXIUM [Suspect]
     Indication: GASTROOESOPHAGEAL REFLUX DISEASE
     Dosage: TWO TIMES A DAY
     Route: 048
  2. NEXIUM [Suspect]
     Indication: ULCER
     Dosage: TWO TIMES A DAY
     Route: 048
  3. NEXIUM [Suspect]
     Indication: GASTROOESOPHAGEAL REFLUX DISEASE
     Route: 048
     Dates: start: 200303
  4. NEXIUM [Suspect]
     Indication: ULCER
     Route: 048
     Dates: start: 200303
  5. NEXIUM [Suspect]
     Indication: GASTROOESOPHAGEAL REFLUX DISEASE
     Route: 048
     Dates: start: 2003
  6. NEXIUM [Suspect]
     Indication: ULCER
     Route: 048
     Dates: start: 2003
  7. NEXIUM [Suspect]
     Indication: GASTROOESOPHAGEAL REFLUX DISEASE
     Route: 048
     Dates: start: 20050706
  8. NEXIUM [Suspect]
     Indication: ULCER
     Route: 048
     Dates: start: 20050706
  9. TUMS [Concomitant]
  10. PEPTO BISMOL [Concomitant]
  11. BABY ASPIRIN [Concomitant]
  12. TRAMADOL [Concomitant]
     Indication: FIBROMYALGIA
  13. FLUCONAZOLE [Concomitant]
  14. IBUPROFEN [Concomitant]
  15. SIMVASTATIN [Concomitant]
     Indication: BLOOD CHOLESTEROL ABNORMAL

REACTIONS (13)
  - Wrist fracture [Unknown]
  - Arthropathy [Unknown]
  - Foot fracture [Unknown]
  - Arthritis [Unknown]
  - Fracture [Unknown]
  - Ear disorder [Unknown]
  - Osteoporosis [Unknown]
  - Multiple fractures [Unknown]
  - Accident at work [Unknown]
  - Dyspepsia [Unknown]
  - Osteoarthritis [Unknown]
  - Hand deformity [Unknown]
  - Depression [Unknown]
